FAERS Safety Report 7166921-4 (Version None)
Quarter: 2010Q4

REPORT INFORMATION
  Report Type: 
  Country: None (occurrence: None)
  Receive Date: 20101216
  Receipt Date: 20101207
  Transmission Date: 20110411
  Serious: Yes (Hospitalization)
  Sender: FDA-Public Use
  Company Number: JP-ASTRAZENECA-2010SE30664

PATIENT
  Age: 27418 Day
  Sex: Male
  Weight: 45 kg

DRUGS (6)
  1. ZOLADEX [Suspect]
     Indication: PROSTATE CANCER
     Route: 058
     Dates: start: 20090930, end: 20100628
  2. CASODEX [Concomitant]
     Indication: PROSTATE CANCER
     Route: 048
     Dates: start: 20090819
  3. ZOLADEX [Concomitant]
     Indication: PROSTATE CANCER
     Route: 058
     Dates: start: 20090902
  4. SELBEX [Concomitant]
     Indication: GASTRITIS
     Route: 048
     Dates: start: 20090819
  5. HYPEN [Concomitant]
     Indication: PAIN
     Route: 048
     Dates: start: 20090819
  6. LOXONIN [Concomitant]
     Indication: PAIN
     Route: 048
     Dates: start: 20100324

REACTIONS (1)
  - INJECTION SITE HAEMATOMA [None]
